FAERS Safety Report 19961237 (Version 2)
Quarter: 2021Q4

REPORT INFORMATION
  Report Type: Report from Study
  Country: US (occurrence: US)
  Receive Date: 20211016
  Receipt Date: 20211210
  Transmission Date: 20220303
  Serious: Yes (Hospitalization)
  Sender: FDA-Public Use
  Company Number: US-TEVA-2021-US-1965688

PATIENT
  Age: 19 Year
  Sex: Male
  Weight: 69 kg

DRUGS (10)
  1. METHOTREXATE [Suspect]
     Active Substance: METHOTREXATE
     Indication: Acute lymphocytic leukaemia
     Dosage: 35 MILLIGRAM, WEEKLY
     Route: 048
     Dates: start: 20210629, end: 20210903
  2. METHOTREXATE [Suspect]
     Active Substance: METHOTREXATE
     Dosage: 50% LESS DOSE (17.5 MILLIGRAM, WEEKLY)
     Route: 048
     Dates: start: 20210914
  3. VINCRISTINE [Suspect]
     Active Substance: VINCRISTINE
     Indication: Acute lymphocytic leukaemia
     Dosage: 2 MILLIGRAM DAILY;
     Route: 042
     Dates: start: 20210622
  4. PREDNISONE [Suspect]
     Active Substance: PREDNISONE
     Indication: Acute lymphocytic leukaemia
     Dosage: 70 MILLIGRAM DAILY; FOR 5 DAYS?LAST DOSE OF PREDNISONE PRIOR TO THE SAE WAS TAKEN ON 21-AUG-2021
     Route: 048
     Dates: start: 20210622
  5. MERCAPTOPURINE [Suspect]
     Active Substance: MERCAPTOPURINE
     Indication: Acute lymphocytic leukaemia
     Dosage: 125MG X 5 DAYS/WEEK AND 150MG X 2 DAYS/WEEK?LAST DOSE WAS TAKEN ON 02-SEP-2021.
     Route: 048
     Dates: start: 20210622, end: 20210903
  6. MERCAPTOPURINE [Suspect]
     Active Substance: MERCAPTOPURINE
     Dosage: 50% LESS DOSE (62.5MG X 5 DAYS/WEEK; 75MG X 2 DAYS/WEEK)
     Route: 048
     Dates: start: 20210914
  7. RUXOLITINIB [Suspect]
     Active Substance: RUXOLITINIB
     Indication: Acute lymphocytic leukaemia
     Dosage: 170 MILLIGRAM DAILY;
     Route: 048
     Dates: start: 20210622
  8. SULFAMETHOXAZOLE AND TRIMETHOPRIM [Concomitant]
     Active Substance: SULFAMETHOXAZOLE\TRIMETHOPRIM
     Dates: start: 201707
  9. VALTREX [Concomitant]
     Active Substance: VALACYCLOVIR HYDROCHLORIDE
     Dates: start: 20200528
  10. RIVAROXABAN [Concomitant]
     Active Substance: RIVAROXABAN
     Dates: start: 20210619

REACTIONS (1)
  - Febrile neutropenia [Recovered/Resolved]

NARRATIVE: CASE EVENT DATE: 20210903
